FAERS Safety Report 17072186 (Version 4)
Quarter: 2020Q1

REPORT INFORMATION
  Report Type: Report from Study
  Country: CO (occurrence: CO)
  Receive Date: 20191125
  Receipt Date: 20200113
  Transmission Date: 20200409
  Serious: Yes (Hospitalization)
  Sender: FDA-Public Use
  Company Number: CO-BAYER-2019-208525

PATIENT
  Age: 60 Year
  Sex: Male

DRUGS (1)
  1. ADEMPAS [Suspect]
     Active Substance: RIOCIGUAT
     Indication: PULMONARY HYPERTENSION
     Dosage: 2.5 MG, Q8HR
     Dates: start: 20180828

REACTIONS (5)
  - Pulmonary thrombosis [Not Recovered/Not Resolved]
  - Ill-defined disorder [None]
  - Laboratory test abnormal [None]
  - Hospitalisation [Not Recovered/Not Resolved]
  - Tremor [Not Recovered/Not Resolved]

NARRATIVE: CASE EVENT DATE: 2019
